FAERS Safety Report 7775501-9 (Version None)
Quarter: 2011Q3

REPORT INFORMATION
  Report Type: 
  Country: None (occurrence: None)
  Receive Date: 20110921
  Receipt Date: 20110914
  Transmission Date: 20111222
  Serious: Yes (Life-Threatening, Hospitalization, Disabling, Other)
  Sender: FDA-Public Use
  Company Number: 2011SP013597

PATIENT
  Sex: Female

DRUGS (3)
  1. SAPHRIS [Suspect]
     Indication: BIPOLAR DISORDER
     Dosage: 10 MG; BID; PO
     Route: 048
     Dates: start: 20110127
  2. SEROQUEL [Concomitant]
  3. AMITRIPTYLINE HCL [Concomitant]

REACTIONS (2)
  - DRUG INTOLERANCE [None]
  - ANAPHYLACTIC SHOCK [None]
